FAERS Safety Report 4531612-2 (Version None)
Quarter: 2004Q4

REPORT INFORMATION
  Report Type: 
  Country: None (occurrence: None)
  Receive Date: 20041216
  Receipt Date: 20041206
  Transmission Date: 20050328
  Serious: Yes (Other)
  Sender: FDA-Public Use
  Company Number: 2004100529

PATIENT
  Age: 71 Year
  Sex: Male
  Weight: 95.2554 kg

DRUGS (12)
  1. VIAGRA [Suspect]
     Indication: ERECTILE DYSFUNCTION
     Dosage: 50 MG (50 MG, 1 IN 1 AS NECESSARY), ORAL
     Route: 048
  2. NORVASC [Suspect]
     Indication: ILL-DEFINED DISORDER
  3. SIMVASTATIN [Suspect]
     Indication: ILL-DEFINED DISORDER
  4. DIGOXIN [Suspect]
     Indication: ILL-DEFINED DISORDER
  5. METOPROLOL TARTRATE [Suspect]
     Indication: ILL-DEFINED DISORDER
  6. HYZAAR [Suspect]
     Indication: ILL-DEFINED DISORDER
  7. WARFARIN (WARFARIN) [Concomitant]
  8. FOLIC ACID [Concomitant]
  9. MULTIVITAMINS (ASCORBIC ACID/ERGOCALCIFEROL/FOLIC ACID/NICOTINAMIDE/PA [Concomitant]
  10. ANTIHYPERTENSIVES (ANTIHYPERTENSIVES) [Concomitant]
  11. TOCOPHEROL CONCENTRATE CAP [Concomitant]
  12. ASPIRIN [Concomitant]

REACTIONS (8)
  - CARDIAC DISORDER [None]
  - CONCOMITANT DISEASE AGGRAVATED [None]
  - DRUG EFFECT DECREASED [None]
  - DRUG INTERACTION [None]
  - FLUSHING [None]
  - HEART VALVE REPLACEMENT [None]
  - MEDICATION ERROR [None]
  - PHARMACEUTICAL PRODUCT COMPLAINT [None]
